FAERS Safety Report 7307863-0 (Version None)
Quarter: 2011Q1

REPORT INFORMATION
  Report Type: 
  Country: None (occurrence: None)
  Receive Date: 20110223
  Receipt Date: 20110222
  Transmission Date: 20110831
  Serious: Yes (Death)
  Sender: FDA-Public Use
  Company Number: US-B.I. PHARMACEUTICALS,INC./RIDGEFIELD-2011-BP-01697BP

PATIENT
  Sex: Female

DRUGS (3)
  1. SPIRIVA [Suspect]
     Indication: ASTHMA
     Dosage: 18 MCG
     Route: 055
     Dates: end: 20101126
  2. PREMARIN [Suspect]
  3. ADVAIR HFA [Concomitant]
     Indication: ASTHMA
     Dosage: INH
     Route: 055
     Dates: start: 20020101, end: 20101126

REACTIONS (1)
  - BREAST CANCER [None]
